FAERS Safety Report 7731206-1 (Version None)
Quarter: 2011Q3

REPORT INFORMATION
  Report Type: 
  Country: None (occurrence: None)
  Receive Date: 20110906
  Receipt Date: 20110829
  Transmission Date: 20111222
  Serious: Yes (Hospitalization)
  Sender: FDA-Public Use
  Company Number: BR-MEDIMMUNE-MEDI-0013524

PATIENT
  Sex: Female
  Weight: 9 kg

DRUGS (8)
  1. ENALAPRIL MALEATE [Concomitant]
     Dosage: 0.5 TABLET DILUTED IN 5 ML OF WATER
     Route: 048
     Dates: start: 20091216
  2. CLOROMEDROL [Concomitant]
     Route: 042
  3. SYNAGIS [Suspect]
  4. SYNAGIS [Suspect]
     Route: 030
     Dates: start: 20110411, end: 20110411
  5. SPIRONOLACTONE [Concomitant]
     Indication: HYPERTENSION
     Route: 048
     Dates: start: 20091216
  6. FUROSEMIDE [Concomitant]
     Dosage: 0.5 TABLET DILUTED IN 10ML OF WATER
     Route: 048
     Dates: start: 20091216
  7. SODIUM CHLORIDE 0.9% [Concomitant]
  8. HYDROCHLOROTHIAZIDE [Concomitant]
     Indication: HYPERTENSION
     Route: 048
     Dates: start: 20091216

REACTIONS (8)
  - INFREQUENT BOWEL MOVEMENTS [None]
  - BRONCHOSPASM [None]
  - WEIGHT INCREASED [None]
  - INFLUENZA [None]
  - PNEUMONIA [None]
  - INCREASED BRONCHIAL SECRETION [None]
  - PYREXIA [None]
  - COUGH [None]
